FAERS Safety Report 8549558-1 (Version None)
Quarter: 2012Q3

REPORT INFORMATION
  Report Type: 
  Country: None (occurrence: None)
  Receive Date: 20120730
  Receipt Date: 20120724
  Transmission Date: 20120928
  Serious: Yes (Hospitalization)
  Sender: FDA-Public Use
  Company Number: GB-PFIZER INC-2012155519

PATIENT
  Age: 22 Year
  Sex: Male

DRUGS (2)
  1. PHENYTOIN [Suspect]
     Dosage: 300 MG, (STRENGTH 90MG/5ML)
  2. PHENYTOIN [Suspect]
     Dosage: 8ML (144MG) IN THE MORNING AND 7ML (126MG) AT NIGHT
     Dates: start: 20120326

REACTIONS (4)
  - EXPIRED DRUG ADMINISTERED [None]
  - DRUG INEFFECTIVE [None]
  - EPILEPSY [None]
  - DRUG LEVEL DECREASED [None]
